FAERS Safety Report 11294880 (Version 1)
Quarter: 2015Q3

REPORT INFORMATION
  Report Type: Spontaneous
  Country: US (occurrence: US)
  Receive Date: 20150723
  Receipt Date: 20150723
  Transmission Date: 20151125
  Serious: Yes (Other)
  Sender: FDA-Public Use
  Company Number: US-ASTRAZENECA-2015SE68910

PATIENT
  Sex: Male

DRUGS (3)
  1. LIPITOR [Interacting]
     Active Substance: ATORVASTATIN CALCIUM
     Route: 065
  2. TICAGRELOR [Interacting]
     Active Substance: TICAGRELOR
     Route: 048
  3. CASODEX [Suspect]
     Active Substance: BICALUTAMIDE
     Indication: PROSTATE CANCER
     Route: 048

REACTIONS (2)
  - Myocardial infarction [Unknown]
  - Drug interaction [Unknown]
